FAERS Safety Report 5672435-0 (Version None)
Quarter: 2008Q1

REPORT INFORMATION
  Report Type: 
  Country: None (occurrence: None)
  Receive Date: 20080318
  Receipt Date: 20080318
  Transmission Date: 20080703
  Serious: Yes (Life-Threatening)
  Sender: FDA-Public Use
  Company Number: None

PATIENT
  Age: 51 Year
  Sex: Female
  Weight: 73 kg

DRUGS (2)
  1. TYGACIL [Suspect]
     Indication: ILL-DEFINED DISORDER
     Dosage: 50MG Q12H IV BOLUS
     Route: 040
     Dates: start: 20080228, end: 20080313
  2. TAMIFLU [Suspect]
     Indication: INFLUENZA
     Dosage: 75MG Q12H PO
     Route: 048
     Dates: start: 20080304, end: 20080310

REACTIONS (1)
  - PANCREATITIS [None]
